FAERS Safety Report 6675502-8 (Version None)
Quarter: 2010Q2

REPORT INFORMATION
  Report Type: 
  Country: None (occurrence: None)
  Receive Date: 20100409
  Receipt Date: 20100407
  Transmission Date: 20101027
  Serious: Yes (Hospitalization)
  Sender: FDA-Public Use
  Company Number: B0646134A

PATIENT
  Sex: Female
  Weight: 70 kg

DRUGS (2)
  1. FONDAPARINUX SODIUM [Suspect]
     Route: 058
  2. AGGRENOX [Concomitant]
     Route: 048
     Dates: end: 20100404

REACTIONS (3)
  - ASTHENIA [None]
  - ATRIAL FIBRILLATION [None]
  - SPONTANEOUS HAEMATOMA [None]
